FAERS Safety Report 7288819-3 (Version None)
Quarter: 2011Q1

REPORT INFORMATION
  Report Type: 
  Country: None (occurrence: None)
  Receive Date: 20110211
  Receipt Date: 20110202
  Transmission Date: 20110831
  Serious: Yes (Hospitalization)
  Sender: FDA-Public Use
  Company Number: GB-MERCK-1102GBR00017

PATIENT
  Age: 75 Year
  Sex: Male

DRUGS (14)
  1. AMITRIPTYLINE HYDROCHLORIDE [Concomitant]
     Route: 065
  2. ACETAMINOPHEN [Concomitant]
     Route: 065
  3. FUMARIC ACID [Concomitant]
     Route: 065
  4. METFORMIN [Concomitant]
     Route: 065
  5. NICORANDIL [Concomitant]
     Route: 065
  6. SIMVASTATIN [Concomitant]
     Route: 048
  7. JANUVIA [Suspect]
     Route: 048
     Dates: start: 20101021
  8. ASPIRIN [Concomitant]
     Route: 065
  9. BISOPROLOL [Concomitant]
     Route: 065
  10. RAMIPRIL [Concomitant]
     Route: 065
  11. AMLODIPINE [Concomitant]
     Route: 065
  12. BUMETANIDE [Concomitant]
     Route: 065
  13. FENTANYL [Concomitant]
     Route: 065
  14. GLICLAZIDE [Concomitant]
     Route: 065

REACTIONS (3)
  - MALAISE [None]
  - FATIGUE [None]
  - HYPERTHYROIDISM [None]
